FAERS Safety Report 25511632 (Version 1)
Quarter: 2025Q3

REPORT INFORMATION
  Report Type: Spontaneous
  Country: US (occurrence: US)
  Receive Date: 20250703
  Receipt Date: 20250703
  Transmission Date: 20251021
  Serious: No
  Sender: RADIUS PHARM
  Company Number: US-RADIUS HEALTH INC.-2024US004197

PATIENT
  Sex: Female

DRUGS (1)
  1. TYMLOS [Suspect]
     Active Substance: ABALOPARATIDE
     Indication: Senile osteoporosis
     Route: 058
     Dates: start: 202401

REACTIONS (6)
  - Erythema [Unknown]
  - Intentional product misuse [Unknown]
  - Heart rate increased [Unknown]
  - Muscle spasms [Unknown]
  - Bone pain [Unknown]
  - Chills [Unknown]
